FAERS Safety Report 18576088 (Version 5)
Quarter: 2021Q1

REPORT INFORMATION
  Report Type: Report from Study
  Country: US (occurrence: US)
  Receive Date: 20201203
  Receipt Date: 20210223
  Transmission Date: 20210419
  Serious: Yes (Other)
  Sender: FDA-Public Use
  Company Number: US-UCBSA-2020045543

PATIENT
  Age: 41 Year
  Sex: Female

DRUGS (2)
  1. CERTOLIZUMAB PEGOL [Suspect]
     Active Substance: CERTOLIZUMAB PEGOL
     Dosage: 400 MILLIGRAM, EV 4 WEEKS
     Dates: start: 2020, end: 20201208
  2. CERTOLIZUMAB PEGOL [Suspect]
     Active Substance: CERTOLIZUMAB PEGOL
     Indication: ANKYLOSING SPONDYLITIS
     Dosage: 400 MILLIGRAM, EV 2 WEEKS(QOW)
     Dates: start: 202003, end: 2020

REACTIONS (11)
  - Cellulitis [Not Recovered/Not Resolved]
  - Intentional dose omission [Unknown]
  - Polycythaemia [Not Recovered/Not Resolved]
  - Insurance issue [Unknown]
  - Frustration tolerance decreased [Not Recovered/Not Resolved]
  - Therapy interrupted [Unknown]
  - Nodule [Not Recovered/Not Resolved]
  - Anxiety [Not Recovered/Not Resolved]
  - Exposure to SARS-CoV-2 [Not Recovered/Not Resolved]
  - Therapeutic response decreased [Unknown]
  - Pain in extremity [Not Recovered/Not Resolved]

NARRATIVE: CASE EVENT DATE: 20201208
